FAERS Safety Report 5704521-0 (Version None)
Quarter: 2008Q2

REPORT INFORMATION
  Report Type: 
  Country: None (occurrence: None)
  Receive Date: 20080414
  Receipt Date: 20080407
  Transmission Date: 20081010
  Serious: No
  Sender: FDA-Public Use
  Company Number: GB-PFIZER INC-2008029506

PATIENT
  Age: 73 Year
  Sex: Female

DRUGS (5)
  1. PREDNISOLONE [Suspect]
     Dosage: DAILY DOSE:30MG
     Dates: start: 20000101, end: 20010101
  2. PREDNISOLONE [Suspect]
     Dosage: DAILY DOSE:5MG
  3. METHOTREXATE [Suspect]
  4. CYCLOSPORINE [Concomitant]
  5. LEFLUNOMIDE [Concomitant]

REACTIONS (1)
  - NO ADVERSE EVENT [None]
